FAERS Safety Report 8333364-7 (Version None)
Quarter: 2012Q1

REPORT INFORMATION
  Report Type: 
  Country: None (occurrence: None)
  Receive Date: 20120327
  Receipt Date: 20110413
  Transmission Date: 20120608
  Serious: Yes (Other)
  Sender: FDA-Public Use
  Company Number: PHHY2011US30732

PATIENT
  Age: 93 Year
  Sex: Female
  Weight: 55 kg

DRUGS (2)
  1. GLEEVEC [Suspect]
     Indication: CHRONIC MYELOID LEUKAEMIA
     Dosage: 200 MG, EVERY  MON-WED-FRI, ORAL
     Route: 048
     Dates: start: 20081001, end: 20110318
  2. BYSTOLIC [Concomitant]

REACTIONS (1)
  - CARDIAC FAILURE CONGESTIVE [None]
